FAERS Safety Report 14854776 (Version 1)
Quarter: 2018Q2

REPORT INFORMATION
  Report Type: Spontaneous
  Country: US (occurrence: US)
  Receive Date: 20180420
  Receipt Date: 20180420
  Transmission Date: 20180711
  Serious: Yes (Other)
  Sender: FDA-Public Use
  Company Number: None

PATIENT
  Age: 30 Year
  Sex: Female
  Weight: 87.75 kg

DRUGS (5)
  1. VALTREX [Concomitant]
     Active Substance: VALACYCLOVIR HYDROCHLORIDE
  2. SILYMARIN [Concomitant]
     Active Substance: DIETARY SUPPLEMENT\HERBALS\MILK THISTLE
  3. MULTIVITAMIN [Concomitant]
     Active Substance: VITAMINS
  4. JUNEL FE 1/20 [Suspect]
     Active Substance: ETHINYL ESTRADIOL\NORETHINDRONE ACETATE
     Indication: CONTRACEPTION
     Dosage: ?          QUANTITY:28 DF DOSAGE FORM;?
     Route: 048
  5. LYSINE [Concomitant]
     Active Substance: LYSINE

REACTIONS (4)
  - Hepatic enzyme increased [None]
  - Focal nodular hyperplasia [None]
  - Hepatic adenoma [None]
  - Hepatic lesion [None]

NARRATIVE: CASE EVENT DATE: 20180404
